FAERS Safety Report 12252260 (Version 1)
Quarter: 2016Q2

REPORT INFORMATION
  Report Type: Spontaneous
  Country: US (occurrence: US)
  Receive Date: 20160411
  Receipt Date: 20160411
  Transmission Date: 20160815
  Serious: No
  Sender: FDA-Public Use
  Company Number: US-BAYER-2016-067913

PATIENT
  Age: 83 Year
  Sex: Male
  Weight: 81.63 kg

DRUGS (6)
  1. APIXABAN [Concomitant]
     Active Substance: APIXABAN
     Dosage: UNK
  2. LIPITOR [Concomitant]
     Active Substance: ATORVASTATIN CALCIUM
     Dosage: UNK
  3. LASIX [Concomitant]
     Active Substance: FUROSEMIDE
  4. BABY ASPIRIN [Concomitant]
     Active Substance: ASPIRIN
     Dosage: UNK
  5. POTASSIUM CHLORIDE. [Concomitant]
     Active Substance: POTASSIUM CHLORIDE
  6. MIRALAX [Suspect]
     Active Substance: POLYETHYLENE GLYCOL 3350
     Indication: CONSTIPATION PROPHYLAXIS
     Dosage: 1 DF, QD
     Route: 048
     Dates: start: 2016, end: 20160406

REACTIONS (1)
  - Product use issue [None]

NARRATIVE: CASE EVENT DATE: 2016
